FAERS Safety Report 7199296-5 (Version None)
Quarter: 2010Q4

REPORT INFORMATION
  Report Type: 
  Country: None (occurrence: None)
  Receive Date: 20101228
  Receipt Date: 20101206
  Transmission Date: 20110411
  Serious: Yes (Other)
  Sender: FDA-Public Use
  Company Number: US-BAYER-200712737BWH

PATIENT
  Sex: Male

DRUGS (18)
  1. NEXAVAR [Suspect]
     Indication: RENAL CELL CARCINOMA
     Dosage: 400 MG, BID
     Route: 048
     Dates: start: 20060201, end: 20060101
  2. NEXAVAR [Suspect]
     Indication: METASTASES TO LIVER
     Dosage: 200 MG, BID
     Route: 048
     Dates: start: 20060101, end: 20060101
  3. NEXAVAR [Suspect]
     Route: 048
     Dates: start: 20060615, end: 20100304
  4. NEXAVAR [Suspect]
     Dosage: 400 MG, BID
     Route: 048
     Dates: start: 20100715, end: 20100101
  5. TRICOR [Concomitant]
  6. TRIAMTERENE AND HYDROCHLOROTHIAZIDE [Concomitant]
  7. ALTACE [Concomitant]
  8. OMEPRAZOLE [Concomitant]
  9. PLAVIX [Concomitant]
  10. SIMVASTATIN [Concomitant]
  11. NIFEDIPINE [Concomitant]
  12. ELECTROLYTE [Concomitant]
  13. MULTI-VITAMINS [Concomitant]
  14. CHOLINE DERIVATIVES [Concomitant]
  15. PREVACID [Concomitant]
  16. QUESTRAN [Concomitant]
  17. LOMOTIL [Concomitant]
  18. MULTIVITAMIN [Concomitant]

REACTIONS (7)
  - CYST [None]
  - DIARRHOEA [None]
  - KERATOACANTHOMA [None]
  - LIVING IN RESIDENTIAL INSTITUTION [None]
  - RASH PAPULAR [None]
  - RASH PRURITIC [None]
  - SQUAMOUS CELL CARCINOMA OF SKIN [None]
